FAERS Safety Report 4365694-8 (Version None)
Quarter: 2004Q2

REPORT INFORMATION
  Report Type: 
  Country: None (occurrence: None)
  Receive Date: 20040520
  Receipt Date: 20040506
  Transmission Date: 20050107
  Serious: No
  Sender: FDA-Public Use
  Company Number: 206569

PATIENT
  Sex: Female

DRUGS (2)
  1. HERCEPTIN [Suspect]
     Indication: BREAST CANCER METASTATIC
     Dosage: 248 MG, SINGLE , INTRAVENOUS : 125 MG, 1/WEEK, INTRAVENOUS
     Route: 042
     Dates: start: 20040222, end: 20040222
  2. HERCEPTIN [Suspect]
     Indication: BREAST CANCER METASTATIC
     Dosage: 248 MG, SINGLE , INTRAVENOUS : 125 MG, 1/WEEK, INTRAVENOUS
     Route: 042
     Dates: start: 20040304

REACTIONS (2)
  - ANAPHYLACTIC REACTION [None]
  - DYSPNOEA [None]
